FAERS Safety Report 24291757 (Version 4)
Quarter: 2025Q1

REPORT INFORMATION
  Report Type: Spontaneous
  Country: US (occurrence: US)
  Receive Date: 20240906
  Receipt Date: 20250226
  Transmission Date: 20250409
  Serious: No
  Sender: SUNOVION
  Company Number: US-SMPA-2024SPA001267AA

PATIENT

DRUGS (33)
  1. ORGOVYX [Suspect]
     Active Substance: RELUGOLIX
     Indication: Prostate cancer
     Dosage: 360 MG, SINGLE
     Route: 048
     Dates: start: 20240508, end: 20240508
  2. ORGOVYX [Suspect]
     Active Substance: RELUGOLIX
     Dosage: 120 MG, QD
     Route: 048
     Dates: start: 20240509
  3. ATORVASTATIN [Concomitant]
     Active Substance: ATORVASTATIN
     Route: 065
  4. CARVEDILOL [Concomitant]
     Active Substance: CARVEDILOL
     Route: 065
  5. CLOPIDOGREL [Concomitant]
     Active Substance: CLOPIDOGREL BISULFATE
     Route: 065
  6. HYDROCORTISONE [Concomitant]
     Active Substance: HYDROCORTISONE
     Route: 065
  7. IRBESARTAN [Concomitant]
     Active Substance: IRBESARTAN
     Route: 065
  8. LEVOXYL [Concomitant]
     Active Substance: LEVOTHYROXINE SODIUM
     Route: 065
  9. OMEPRAZOLE [Concomitant]
     Active Substance: OMEPRAZOLE
     Route: 065
  10. TAMSULOSIN [Concomitant]
     Active Substance: TAMSULOSIN
     Route: 065
  11. XTANDI [Concomitant]
     Active Substance: ENZALUTAMIDE
     Indication: Prostate cancer
     Dosage: 160 MG, QD
     Route: 065
  12. ZETIA [Concomitant]
     Active Substance: EZETIMIBE
     Route: 065
  13. BIOTIN [Concomitant]
     Active Substance: BIOTIN
  14. VITAMINS [Concomitant]
     Active Substance: VITAMINS
  15. CITRULLINE [Concomitant]
     Active Substance: CITRULLINE
  16. COENZYME Q10 [Concomitant]
     Active Substance: DIETARY SUPPLEMENT\UBIDECARENONE
  17. FISH OIL [Concomitant]
     Active Substance: FISH OIL
  18. VITAMIN B12 [Concomitant]
     Active Substance: CYANOCOBALAMIN
  19. VITAMIN E [Concomitant]
     Active Substance: .ALPHA.-TOCOPHEROL
  20. FOLIC ACID [Concomitant]
     Active Substance: FOLIC ACID
  21. GABAPENTIN [Concomitant]
     Active Substance: GABAPENTIN
  22. GLUCOSAMINE [Concomitant]
     Active Substance: GLUCOSAMINE
  23. CHONDROITIN SULFATE (BOVINE) [Concomitant]
     Active Substance: CHONDROITIN SULFATE (BOVINE)
  24. Grapeseed extract [Concomitant]
  25. ARGININE [Concomitant]
     Active Substance: ARGININE
  26. LEVOCARNITINE [Concomitant]
     Active Substance: LEVOCARNITINE
  27. DIETARY SUPPLEMENT\HERBALS\MILK THISTLE [Concomitant]
     Active Substance: MILK THISTLE
  28. SELENIUM [Concomitant]
     Active Substance: SELENIUM
  29. MINERALS\VITAMINS [Concomitant]
     Active Substance: MINERALS\VITAMINS
  30. DIETARY SUPPLEMENT\RESVERATROL [Concomitant]
     Active Substance: DIETARY SUPPLEMENT\RESVERATROL
  31. HERBALS\TURMERIC [Concomitant]
     Active Substance: HERBALS\TURMERIC
  32. VITAMIN C [Concomitant]
     Active Substance: ASCORBIC ACID
  33. VITAMIN D3 [Concomitant]
     Active Substance: CHOLECALCIFEROL

REACTIONS (9)
  - Pain [Unknown]
  - Dyspnoea [Unknown]
  - Back disorder [Unknown]
  - Tremor [Unknown]
  - Muscle twitching [Unknown]
  - Abdominal discomfort [Unknown]
  - Headache [Unknown]
  - Fatigue [Unknown]
  - Pain in extremity [Unknown]
